FAERS Safety Report 6972027-7 (Version None)
Quarter: 2010Q3

REPORT INFORMATION
  Report Type: 
  Country: None (occurrence: None)
  Receive Date: 20100909
  Receipt Date: 20100831
  Transmission Date: 20110219
  Serious: Yes (Hospitalization)
  Sender: FDA-Public Use
  Company Number: US-BIOGENIDEC-2010BI025477

PATIENT
  Age: 36 Year
  Sex: Male

DRUGS (2)
  1. TYSABRI [Suspect]
     Indication: MULTIPLE SCLEROSIS
     Route: 042
     Dates: start: 20050224, end: 20050101
  2. TYSABRI [Suspect]
     Route: 042
     Dates: start: 20100616

REACTIONS (4)
  - HYPERSENSITIVITY [None]
  - PARTIAL SEIZURES [None]
  - RASH [None]
  - RESPIRATORY FAILURE [None]
